FAERS Safety Report 13895605 (Version 1)
Quarter: 2017Q3

REPORT INFORMATION
  Report Type: Spontaneous
  Country: US (occurrence: US)
  Receive Date: 20170823
  Receipt Date: 20170823
  Transmission Date: 20171127
  Serious: No
  Sender: FDA-Public Use
  Company Number: US-PFIZER INC-2017361000

PATIENT
  Age: 60 Year
  Sex: Female

DRUGS (1)
  1. XELJANZ XR [Suspect]
     Active Substance: TOFACITINIB CITRATE
     Dosage: 11 MG, UNK

REACTIONS (6)
  - Nausea [Unknown]
  - Sinusitis [Unknown]
  - Oropharyngeal pain [Not Recovered/Not Resolved]
  - Thirst [Unknown]
  - Sputum increased [Unknown]
  - Pyrexia [Unknown]
